FAERS Safety Report 10072175 (Version 2)
Quarter: 2014Q2

REPORT INFORMATION
  Report Type: Spontaneous
  Country: US (occurrence: US)
  Receive Date: 20140411
  Receipt Date: 20140521
  Transmission Date: 20141212
  Serious: Yes (Hospitalization)
  Sender: FDA-Public Use
  Company Number: US-SA-2014SA042810

PATIENT
  Age: 42 Year
  Sex: Male
  Weight: 72 kg

DRUGS (1)
  1. FABRAZYME [Suspect]
     Indication: FABRY^S DISEASE
     Dosage: PER 250CC
     Route: 042
     Dates: start: 2000

REACTIONS (2)
  - Aortic valve stenosis [Unknown]
  - Endocarditis [Recovered/Resolved]
